FAERS Safety Report 21323741 (Version 1)
Quarter: 2022Q3

REPORT INFORMATION
  Report Type: Spontaneous
  Country: MY (occurrence: MY)
  Receive Date: 20220912
  Receipt Date: 20220912
  Transmission Date: 20221027
  Serious: Yes (Hospitalization, Other)
  Sender: FDA-Public Use
  Company Number: MY-VIRTUS PHARMACEUTICALS, LLC-2022VTS00028

PATIENT
  Age: 54 Year
  Sex: Male

DRUGS (5)
  1. ALBUTEROL [Suspect]
     Active Substance: ALBUTEROL
     Indication: Asthma
     Dosage: 2 PUFFS AS REQUIRED
  2. ALBUTEROL [Suspect]
     Active Substance: ALBUTEROL
     Dosage: 1600 MICROGRAMS
  3. METFORMIN [Concomitant]
     Active Substance: METFORMIN HYDROCHLORIDE
     Indication: Diabetes mellitus
     Dosage: 1 G, 2X/DAY
     Route: 065
  4. GLICLAZIDE [Concomitant]
     Active Substance: GLICLAZIDE
     Indication: Diabetes mellitus
     Dosage: 40 MG, 1X/DAY
     Route: 065
  5. BUDESONIDE [Concomitant]
     Active Substance: BUDESONIDE
     Indication: Asthma
     Dosage: 2 PUFFS TWO TIMES PER DAY

REACTIONS (2)
  - Diaphragmatic spasm [Recovered/Resolved]
  - Paroxysmal sympathetic hyperactivity [Recovered/Resolved]
